FAERS Safety Report 7709645-4 (Version None)
Quarter: 2011Q3

REPORT INFORMATION
  Report Type: 
  Country: None (occurrence: None)
  Receive Date: 20110825
  Receipt Date: 20110817
  Transmission Date: 20111222
  Serious: Yes (Other)
  Sender: FDA-Public Use
  Company Number: US-GLAXOSMITHKLINE-A0931742A

PATIENT
  Age: 46 Year
  Sex: Male

DRUGS (3)
  1. ALBUTEROL [Concomitant]
  2. ADVAIR DISKUS 100/50 [Suspect]
     Indication: ASTHMA
     Dosage: 1PUFF TWICE PER DAY
     Route: 055
     Dates: start: 20060201
  3. PROVENTIL [Concomitant]

REACTIONS (5)
  - PRODUCT QUALITY ISSUE [None]
  - DYSPNOEA [None]
  - ILL-DEFINED DISORDER [None]
  - ASTHMA [None]
  - DRUG INEFFECTIVE [None]
